FAERS Safety Report 8509085-4 (Version None)
Quarter: 2012Q3

REPORT INFORMATION
  Report Type: 
  Country: None (occurrence: None)
  Receive Date: 20120713
  Receipt Date: 20120712
  Transmission Date: 20120928
  Serious: Yes (Hospitalization)
  Sender: FDA-Public Use
  Company Number: GB-ROCHE-1048266

PATIENT
  Sex: Male

DRUGS (7)
  1. SIMVASTATIN [Concomitant]
  2. NICORANDIL [Concomitant]
  3. NITROGLYCERIN [Concomitant]
     Indication: MYOCARDIAL ISCHAEMIA
  4. ASPIRIN [Concomitant]
  5. BENDROFLUMETHIAZID [Concomitant]
  6. ATENOLOL [Concomitant]
     Indication: HYPERTENSION
  7. LUCENTIS [Suspect]
     Indication: AGE-RELATED MACULAR DEGENERATION
     Route: 050
     Dates: start: 20110129

REACTIONS (1)
  - ANGINA PECTORIS [None]
